FAERS Safety Report 7005461-X (Version None)
Quarter: 2010Q3

REPORT INFORMATION
  Report Type: 
  Country: None (occurrence: None)
  Receive Date: 20100921
  Receipt Date: 20100909
  Transmission Date: 20110219
  Serious: Yes (Hospitalization)
  Sender: FDA-Public Use
  Company Number: FR-ROCHE-726626

PATIENT
  Sex: Male

DRUGS (4)
  1. MYCOPHENOLATE MOFETIL [Suspect]
     Indication: LIVER TRANSPLANT
     Dosage: FREQUENCY: 2XD.
     Route: 048
     Dates: start: 20090923
  2. TACROLIMUS [Suspect]
     Indication: LIVER TRANSPLANT
     Route: 065
     Dates: start: 20090923
  3. PREDNISONE [Suspect]
     Indication: LIVER TRANSPLANT
     Route: 065
     Dates: start: 20090923
  4. NEXIUM [Concomitant]
     Dates: start: 20080926, end: 20090430

REACTIONS (1)
  - CELL DEATH [None]
